FAERS Safety Report 17625592 (Version 5)
Quarter: 2021Q2

REPORT INFORMATION
  Report Type: Report from Study
  Country: KR (occurrence: KR)
  Receive Date: 20200404
  Receipt Date: 20210505
  Transmission Date: 20210716
  Serious: Yes (Other)
  Sender: FDA-Public Use
  Company Number: KR-TAKEDA-2020TUS015549

PATIENT
  Age: 35 Year
  Sex: Male

DRUGS (89)
  1. DASATINIB. [Concomitant]
     Active Substance: DASATINIB
     Indication: PRODUCT USED FOR UNKNOWN INDICATION
     Dosage: 10 MILLIGRAM, QD
     Route: 048
     Dates: start: 20190304, end: 20190707
  2. ZAVEL [Concomitant]
     Active Substance: IDARUBICIN HYDROCHLORIDE
     Indication: PHILADELPHIA POSITIVE ACUTE LYMPHOCYTIC LEUKAEMIA
     Dosage: 21.72 MILLIGRAM, QD
     Route: 042
     Dates: start: 20190704, end: 20190711
  3. AMPHOJEL                           /00057401/ [Concomitant]
     Indication: DYSPEPSIA
     Dosage: 300 MILLIGRAM, BID
     Route: 048
     Dates: start: 20190904, end: 20190904
  4. DEXAMETHASONE. [Concomitant]
     Active Substance: DEXAMETHASONE
     Indication: FEBRILE NEUTROPENIA
     Dosage: 10 MILLIGRAM, BID
     Route: 042
     Dates: start: 20190703, end: 20190708
  5. DEXAMETHASONE. [Concomitant]
     Active Substance: DEXAMETHASONE
     Dosage: 5 MILLIGRAM, QD
     Route: 042
     Dates: start: 20191124, end: 20191124
  6. NASERON [Concomitant]
     Active Substance: RAMOSETRON HYDROCHLORIDE
     Indication: PROPHYLAXIS OF NAUSEA AND VOMITING
     Dosage: 0.3 MILLIGRAM, QD
     Route: 042
     Dates: start: 20190704, end: 20190710
  7. OCUMETHOLONE [Concomitant]
     Indication: EYE DISORDER PROPHYLAXIS
     Dosage: 5 MILLILITER, QD
     Route: 031
     Dates: start: 20190704, end: 20190711
  8. PENIRAMIN [Concomitant]
     Indication: PROPHYLAXIS
     Dosage: 4 MILLIGRAM, QD
     Route: 042
     Dates: start: 20190705, end: 20190716
  9. TAPOCIN [Concomitant]
     Indication: FEBRILE NEUTROPENIA
     Dosage: 400 MILLIGRAM, QD
     Route: 042
     Dates: start: 20190922, end: 20191004
  10. TYLENOL ER [Concomitant]
     Active Substance: ACETAMINOPHEN
     Indication: FEBRILE NEUTROPENIA
     Dosage: 1300 MILLIGRAM, QD
     Route: 048
     Dates: start: 20190627, end: 20190716
  11. CALCIUM CHLORIDE. [Concomitant]
     Active Substance: CALCIUM CHLORIDE
     Dosage: 600 MILLIGRAM, QD
     Route: 042
     Dates: start: 20190726, end: 20190810
  12. TANTUM                             /00052302/ [Concomitant]
     Indication: INFECTION PROPHYLAXIS
     Dosage: 100 MILLILITER, TID
     Route: 050
     Dates: start: 20190717, end: 20200101
  13. TASNA [Concomitant]
     Indication: ACIDOSIS
     Dosage: 6000 MILLIGRAM
     Route: 065
  14. PONATINIB [Suspect]
     Active Substance: PONATINIB
     Indication: PHILADELPHIA POSITIVE ACUTE LYMPHOCYTIC LEUKAEMIA
     Dosage: 45 MILLIGRAM, QD
     Route: 048
     Dates: start: 20190717, end: 20190729
  15. CITOPCIN                           /00697202/ [Concomitant]
     Indication: INFECTION PROPHYLAXIS
     Dosage: 500 MILLIGRAM, BID
     Route: 048
     Dates: start: 20180427, end: 20190715
  16. DEXAMETHASONE. [Concomitant]
     Active Substance: DEXAMETHASONE
     Dosage: 5 MILLIGRAM, QD
     Route: 042
     Dates: start: 20191227, end: 20191227
  17. LIDOCAINE. [Concomitant]
     Active Substance: LIDOCAINE
     Indication: PAIN PROPHYLAXIS
     Dosage: 15 MILLILITER, QD
     Route: 048
     Dates: start: 20190716, end: 20190716
  18. PERATAM [Concomitant]
     Indication: INFECTION PROPHYLAXIS
     Dosage: 1 GRAM, BID
     Route: 042
     Dates: start: 20190703, end: 20190710
  19. PERIDEX                            /00016001/ [Concomitant]
     Active Substance: DEXAMETHASONE
     Indication: PROPHYLAXIS
     Dosage: 6 GRAM, QD
     Route: 061
     Dates: start: 20190716, end: 20190716
  20. CALCIUM CHLORIDE. [Concomitant]
     Active Substance: CALCIUM CHLORIDE
     Indication: HYPOCALCAEMIA
     Dosage: 600 MILLIGRAM, QD
     Route: 042
     Dates: start: 20190717, end: 20190722
  21. CALCIUM CHLORIDE. [Concomitant]
     Active Substance: CALCIUM CHLORIDE
     Dosage: 600 MILLIGRAM, QD
     Route: 042
     Dates: start: 20190924, end: 20190924
  22. DENOGAN [Concomitant]
     Active Substance: PROPACETAMOL HYDROCHLORIDE
     Indication: FEBRILE NEUTROPENIA
     Dosage: 1000 MILLIGRAM, QD
     Route: 042
     Dates: start: 20190717, end: 20190807
  23. NAXEN                              /00256201/ [Concomitant]
     Dosage: 500 MILLIGRAM, BID
     Route: 048
     Dates: start: 20191130, end: 20191211
  24. NEXIUM [Concomitant]
     Active Substance: ESOMEPRAZOLE MAGNESIUM
     Indication: DYSPEPSIA
     Dosage: 40 MILLIGRAM, QD
     Route: 048
     Dates: start: 20190815, end: 20190816
  25. SODIUM BICARBONATE. [Concomitant]
     Active Substance: SODIUM BICARBONATE
     Indication: PROPHYLAXIS
     Dosage: 40 MILLIEQUIVALENT, QD
     Route: 042
     Dates: start: 20180717, end: 20191230
  26. CIPROFLOXACIN. [Concomitant]
     Active Substance: CIPROFLOXACIN
     Indication: FEBRILE NEUTROPENIA
     Dosage: 400 MILLIGRAM, BID
     Route: 042
     Dates: start: 20191204, end: 20191215
  27. TAMIPOOL [Concomitant]
     Active Substance: VITAMINS
     Dosage: 5 MILLILITER, QD
     Route: 042
     Dates: start: 20191126, end: 20191228
  28. PONATINIB [Suspect]
     Active Substance: PONATINIB
     Dosage: 30 MILLIGRAM, QD
     Route: 048
     Dates: start: 20190805, end: 20190812
  29. CYTARABINE FAULDING [Concomitant]
     Indication: PHILADELPHIA POSITIVE ACUTE LYMPHOCYTIC LEUKAEMIA
     Dosage: 3620 MILLIGRAM, QD
     Route: 042
     Dates: start: 20190704, end: 20190708
  30. FASTURTEC [Concomitant]
     Active Substance: RASBURICASE
     Indication: GOUT
     Dosage: UNK
  31. PENIRAMIN [Concomitant]
     Indication: TRANSFUSION
     Dosage: 4 MILLIGRAM
     Route: 042
     Dates: start: 20190719
  32. TYLENOL ER [Concomitant]
     Active Substance: ACETAMINOPHEN
     Dosage: 1300 MILLIGRAM, QD
     Route: 048
     Dates: start: 20190724, end: 20191229
  33. NEXIUM [Concomitant]
     Active Substance: ESOMEPRAZOLE MAGNESIUM
     Indication: PROPHYLAXIS
     Dosage: 40 MILLIGRAM, QD
     Route: 042
     Dates: start: 20190717, end: 20190814
  34. CIPROFLOXACIN. [Concomitant]
     Active Substance: CIPROFLOXACIN
     Indication: INFECTION PROPHYLAXIS
     Dosage: 400 MILLIGRAM, BID
     Route: 042
     Dates: start: 20190627, end: 20190627
  35. LASIX [Concomitant]
     Active Substance: FUROSEMIDE
     Dosage: 20 MILLIGRAM, TID
     Route: 042
     Dates: start: 20190904, end: 20190904
  36. LASIX [Concomitant]
     Active Substance: FUROSEMIDE
     Dosage: 20 MILLIGRAM, TID
     Route: 042
     Dates: start: 20191116, end: 20191116
  37. LASIX [Concomitant]
     Active Substance: FUROSEMIDE
     Dosage: 20 MILLIGRAM, QD
     Route: 042
     Dates: start: 20191129, end: 20191231
  38. CYTARABINE FAULDING [Concomitant]
     Dosage: 3620 MG, BID
     Route: 042
     Dates: start: 20190709, end: 20190711
  39. DEXAMETHASONE. [Concomitant]
     Active Substance: DEXAMETHASONE
     Dosage: 5 MILLIGRAM, QD
     Route: 042
     Dates: start: 20190814, end: 20190816
  40. DEXAMETHASONE. [Concomitant]
     Active Substance: DEXAMETHASONE
     Dosage: 5 MILLIGRAM, QD
     Route: 042
     Dates: start: 20191124, end: 20191224
  41. MAXIPIME [Concomitant]
     Active Substance: CEFEPIME HYDROCHLORIDE
     Indication: INFECTION PROPHYLAXIS
     Dosage: 2000 MILLIGRAM, BID
     Route: 042
     Dates: start: 20190710, end: 20190711
  42. MAXIPIME [Concomitant]
     Active Substance: CEFEPIME HYDROCHLORIDE
     Dosage: 2000 MILLIGRAM, TID
     Route: 042
     Dates: start: 20191119, end: 20191120
  43. TAPOCIN [Concomitant]
     Dosage: 400 MILLIGRAM, QD
     Route: 042
     Dates: start: 20191119, end: 20191229
  44. TEICONIN [Concomitant]
     Dosage: 400 MILLIGRAM, QD
     Route: 042
     Dates: start: 20191213, end: 20191213
  45. CALCIUM CHLORIDE. [Concomitant]
     Active Substance: CALCIUM CHLORIDE
     Dosage: 600 MILLIGRAM, QD
     Route: 042
     Dates: start: 20190815, end: 20190815
  46. VANCO [Concomitant]
     Active Substance: VANCOMYCIN
     Indication: FEBRILE NEUTROPENIA
     Dosage: 0.6 GRAM, TID
     Route: 042
     Dates: start: 20190717, end: 20190730
  47. MAGNESIUM SULFATE. [Concomitant]
     Active Substance: MAGNESIUM SULFATE
     Indication: HYPOMAGNESAEMIA
     Dosage: 3 GRAM, QD
     Route: 042
     Dates: start: 20190717, end: 20190719
  48. ACLOVA                             /00587301/ [Concomitant]
     Indication: INFECTION PROPHYLAXIS
     Dosage: 400 MILLIGRAM, BID
     Route: 048
     Dates: start: 20180704, end: 20190715
  49. ACLOVA                             /00587301/ [Concomitant]
     Dosage: 400 MILLIGRAM, BID
     Route: 048
     Dates: start: 20190808, end: 20191127
  50. CITOPCIN                           /00697202/ [Concomitant]
     Indication: FEBRILE NEUTROPENIA
     Dosage: 500 MILLIGRAM, BID
     Route: 048
     Dates: start: 20191004, end: 20191203
  51. FASTURTEC [Concomitant]
     Active Substance: RASBURICASE
     Indication: PROPHYLAXIS
     Dosage: 6 MILLIGRAM, QD
     Route: 042
     Dates: start: 20190704, end: 20190705
  52. FLUNAZOLE [Concomitant]
     Active Substance: FLUCONAZOLE
     Dosage: 100 MILLIGRAM, BID
     Route: 048
     Dates: start: 20190808, end: 20190820
  53. FLUNAZOLE [Concomitant]
     Active Substance: FLUCONAZOLE
     Dosage: 100 MILLIGRAM, BID
     Route: 048
     Dates: start: 20191107, end: 20200101
  54. PERIDEX                            /00016001/ [Concomitant]
     Active Substance: DEXAMETHASONE
     Indication: PRURITUS
     Dosage: UNK
     Route: 065
  55. TEICONIN [Concomitant]
     Indication: INFECTION PROPHYLAXIS
     Dosage: 400 MILLIGRAM, BID
     Route: 042
     Dates: start: 20190710, end: 20190710
  56. DENOGAN [Concomitant]
     Active Substance: PROPACETAMOL HYDROCHLORIDE
     Dosage: 1000 MILLIGRAM, QD
     Route: 042
     Dates: start: 20190924, end: 20190924
  57. DENOGAN [Concomitant]
     Active Substance: PROPACETAMOL HYDROCHLORIDE
     Dosage: 1000 MILLIGRAM, QD
     Route: 042
     Dates: start: 20191121, end: 20191229
  58. NEUTROGIN [Concomitant]
     Active Substance: LENOGRASTIM
     Indication: FEBRILE NEUTROPENIA
     Dosage: 250 MICROGRAM, QD
     Route: 042
     Dates: start: 20190717, end: 20190722
  59. MUCOSTEN [Concomitant]
     Indication: RESPIRATORY TRACT CONGESTION
     Dosage: 600 MILLIGRAM, BID
     Route: 042
     Dates: start: 20191128, end: 20191217
  60. NEXIUM [Concomitant]
     Active Substance: ESOMEPRAZOLE MAGNESIUM
     Dosage: 40 MILLIGRAM, QD
     Route: 042
     Dates: start: 20191209, end: 20191216
  61. SOLONDO [Concomitant]
     Active Substance: PREDNISOLONE
     Indication: FEBRILE NEUTROPENIA
     Dosage: 30 MILLIGRAM, QD
     Route: 048
     Dates: start: 20190717, end: 20191229
  62. NYSTATIN. [Concomitant]
     Active Substance: NYSTATIN
     Indication: INFECTION PROPHYLAXIS
     Dosage: 5 MILLILITER, TID
     Route: 048
     Dates: start: 20190717, end: 20191217
  63. SPRYCEL [Concomitant]
     Active Substance: DASATINIB
     Indication: PRODUCT USED FOR UNKNOWN INDICATION
     Dosage: 10 MILLIGRAM, QD
     Route: 048
     Dates: start: 20190304, end: 20190707
  64. FURTMAN [Concomitant]
     Indication: DECREASED APPETITE
     Dosage: 0.5 MILLILITER, QD
     Route: 042
     Dates: start: 20190717, end: 20190816
  65. FURTMAN [Concomitant]
     Dosage: 0.2 MILLILITER, QD
     Route: 042
     Dates: start: 20191126, end: 20191228
  66. PHOSTEN [Concomitant]
     Indication: HYPOPHOSPHATAEMIA
     Dosage: 20 MILLILITER, QD
     Route: 042
     Dates: start: 20190717, end: 20190810
  67. FLUNAZOLE [Concomitant]
     Active Substance: FLUCONAZOLE
     Indication: INFECTION PROPHYLAXIS
     Dosage: 100 MILLIGRAM, BID
     Route: 048
     Dates: start: 20190703, end: 20190714
  68. PANTOLOC                           /01263204/ [Concomitant]
     Active Substance: PANTOPRAZOLE SODIUM
     Indication: PROPHYLAXIS
     Dosage: 40 MILLIGRAM, QD
     Route: 042
     Dates: start: 20191218, end: 20191220
  69. TRANEXAMIC ACID. [Concomitant]
     Active Substance: TRANEXAMIC ACID
     Indication: HAEMATOCHEZIA
     Dosage: 500 MILLIGRAM, QD
     Route: 042
     Dates: start: 20190705, end: 20190710
  70. MUCOSTEN [Concomitant]
     Indication: PROPHYLAXIS
     Dosage: 300 MICROGRAM, BID
     Route: 042
     Dates: start: 20190717, end: 20190814
  71. GLIVEC [Concomitant]
     Active Substance: IMATINIB MESYLATE
     Indication: PRODUCT USED FOR UNKNOWN INDICATION
     Dosage: 600 MILLIGRAM, QD
     Route: 048
     Dates: start: 20180427, end: 20180714
  72. LASIX [Concomitant]
     Active Substance: FUROSEMIDE
     Indication: PROPHYLAXIS
     Dosage: 20 MILLIGRAM, QD
     Route: 042
     Dates: start: 20190717, end: 20190813
  73. TASNA [Concomitant]
     Indication: PROPHYLAXIS
     Dosage: 1000 MILLIGRAM, TID
     Route: 048
     Dates: start: 20190728, end: 20190729
  74. AMPHOJEL                           /00057401/ [Concomitant]
     Indication: PROPHYLAXIS
     Dosage: 300 MILLIGRAM, BID
     Route: 048
     Dates: start: 20180419, end: 20190714
  75. CURAN [Concomitant]
     Active Substance: RANITIDINE HYDROCHLORIDE
     Indication: HAEMATOCHEZIA
     Dosage: 50 MILLIGRAM, QD
     Route: 042
     Dates: start: 20190703, end: 20190703
  76. PANTOLOC                           /01263204/ [Concomitant]
     Active Substance: PANTOPRAZOLE SODIUM
     Indication: HAEMATOCHEZIA
     Dosage: 200 MILLIGRAM, QD
     Route: 042
     Dates: start: 20190705, end: 20190707
  77. PHOSLO [Concomitant]
     Active Substance: CALCIUM ACETATE
     Indication: PROPHYLAXIS
     Dosage: 1420 MILLIGRAM, TID
     Route: 048
     Dates: start: 20190706, end: 20190711
  78. PHOSLO [Concomitant]
     Active Substance: CALCIUM ACETATE
     Indication: HYPOCALCAEMIA
     Dosage: UNK
     Route: 065
  79. TEICONIN [Concomitant]
     Dosage: 400 MILLIGRAM, BID
     Route: 042
     Dates: start: 20190921, end: 20190921
  80. NAXEN                              /00256201/ [Concomitant]
     Indication: FEBRILE NEUTROPENIA
     Dosage: 500 MILLIGRAM, BID
     Route: 048
     Dates: start: 20190717, end: 20190802
  81. SODIUM BICARBONATE. [Concomitant]
     Active Substance: SODIUM BICARBONATE
     Indication: ACIDOSIS
     Dosage: 10 GRAM, QD
     Route: 048
     Dates: start: 20190717, end: 20200101
  82. TAMIPOOL [Concomitant]
     Active Substance: VITAMINS
     Indication: DECREASED APPETITE
     Dosage: 5 MILLILITER, QD
     Route: 042
     Dates: start: 20190717, end: 20190816
  83. PONATINIB [Suspect]
     Active Substance: PONATINIB
     Dosage: 45 MILLIGRAM, QD
     Route: 048
     Dates: start: 20190813
  84. DEXAMETHASONE. [Concomitant]
     Active Substance: DEXAMETHASONE
     Indication: PROPHYLAXIS
     Dosage: 5 MILLIGRAM, QD
     Route: 042
     Dates: start: 20190808, end: 20190808
  85. DEXAMETHASONE. [Concomitant]
     Active Substance: DEXAMETHASONE
     Dosage: 10 MILLIGRAM, BID
     Route: 042
     Dates: start: 20190904, end: 20190905
  86. PANTOLOC                           /01263204/ [Concomitant]
     Active Substance: PANTOPRAZOLE SODIUM
     Indication: DYSPEPSIA
     Dosage: 20 MILLIGRAM, QD
     Route: 048
     Dates: start: 20191222
  87. PETHIDINE [Concomitant]
     Active Substance: MEPERIDINE
     Indication: PAIN PROPHYLAXIS
     Dosage: 25 MILLIGRAM, QD
     Route: 042
     Dates: start: 20190708, end: 20190708
  88. TAPOCIN [Concomitant]
     Indication: INFECTION PROPHYLAXIS
     Dosage: 400 MILLIGRAM, QD
     Route: 042
     Dates: start: 20190711, end: 20190714
  89. CANCIDAS [Concomitant]
     Active Substance: CASPOFUNGIN ACETATE
     Indication: FEBRILE NEUTROPENIA
     Dosage: 50 MILLIGRAM, QD
     Route: 042
     Dates: start: 20190717, end: 20190807

REACTIONS (6)
  - Alanine aminotransferase increased [Recovered/Resolved]
  - Nausea [Recovered/Resolved]
  - Pneumonia fungal [Recovered/Resolved]
  - Aspartate aminotransferase increased [Recovered/Resolved]
  - Rash [Recovered/Resolved]
  - Pseudomonas infection [Recovered/Resolved]

NARRATIVE: CASE EVENT DATE: 20190717
